FAERS Safety Report 8262960-0 (Version None)
Quarter: 2012Q2

REPORT INFORMATION
  Report Type: 
  Country: None (occurrence: None)
  Receive Date: 20120405
  Receipt Date: 20120329
  Transmission Date: 20120825
  Serious: Yes (Hospitalization)
  Sender: FDA-Public Use
  Company Number: JP-TEVA-2011004731

PATIENT
  Sex: Male
  Weight: 88 kg

DRUGS (8)
  1. METOCLOPRAMIDE HCL [Concomitant]
     Dates: start: 20110317
  2. TREANDA [Suspect]
     Indication: MANTLE CELL LYMPHOMA
     Route: 042
     Dates: start: 20110315
  3. ARBEKACIN SULFATE [Concomitant]
     Dates: start: 20110406, end: 20110427
  4. GABEXATE MESILATE [Concomitant]
     Dates: start: 20110425, end: 20110425
  5. MICAFUNGIN SODIUM [Concomitant]
     Dates: start: 20110406, end: 20110407
  6. RITUXIMAB [Concomitant]
     Indication: MANTLE CELL LYMPHOMA
     Dates: start: 20100105, end: 20101001
  7. CEFEPIME [Concomitant]
     Dates: start: 20110331, end: 20110331
  8. MEROPENEM [Concomitant]
     Dates: start: 20110401, end: 20110404

REACTIONS (3)
  - DECREASED APPETITE [None]
  - SEPSIS [None]
  - DISSEMINATED INTRAVASCULAR COAGULATION [None]
